FAERS Safety Report 4683717-3 (Version None)
Quarter: 2005Q2

REPORT INFORMATION
  Report Type: 
  Country: None (occurrence: None)
  Receive Date: 20050607
  Receipt Date: 20050527
  Transmission Date: 20051028
  Serious: Yes (Hospitalization)
  Sender: FDA-Public Use
  Company Number: PHBS2005CH07514

PATIENT
  Age: 65 Year
  Sex: Female

DRUGS (4)
  1. ATENOLOL [Concomitant]
     Dosage: 25 MG/DAY
     Route: 048
  2. ADRONAT [Concomitant]
     Dosage: 70 MG, QW
  3. UBIDECARENONE [Concomitant]
  4. SANDOSTATIN LAR [Suspect]
     Dosage: 30 MG, QMO
     Route: 030
     Dates: start: 20000101

REACTIONS (11)
  - ARRHYTHMIA [None]
  - ATRIOVENTRICULAR BLOCK SECOND DEGREE [None]
  - BLOOD PRESSURE DECREASED [None]
  - DYSPNOEA EXERTIONAL [None]
  - ELECTROCARDIOGRAM T WAVE ABNORMAL [None]
  - HYPERHIDROSIS [None]
  - HYPERTROPHIC CARDIOMYOPATHY [None]
  - MALAISE [None]
  - PALPITATIONS [None]
  - SENSE OF OPPRESSION [None]
  - VISION BLURRED [None]
